FAERS Safety Report 10235727 (Version 2)
Quarter: 2014Q2

REPORT INFORMATION
  Report Type: Spontaneous
  Country: IT (occurrence: IT)
  Receive Date: 20140613
  Receipt Date: 20140617
  Transmission Date: 20141212
  Serious: Yes (Hospitalization)
  Sender: FDA-Public Use
  Company Number: IT-SA-2014SA075826

PATIENT
  Age: 51 Year
  Sex: Male

DRUGS (10)
  1. ZOLPIDEM TARTRATE [Suspect]
     Indication: SUICIDE ATTEMPT
     Route: 048
     Dates: start: 20140505, end: 20140505
  2. ZOLPIDEM TARTRATE [Suspect]
     Indication: ADJUSTMENT DISORDER WITH DEPRESSED MOOD
     Route: 048
     Dates: start: 20140505, end: 20140505
  3. UROREC [Suspect]
     Indication: SUICIDE ATTEMPT
     Route: 048
     Dates: start: 20140505, end: 20140505
  4. UROREC [Suspect]
     Indication: BENIGN PROSTATIC HYPERPLASIA
     Route: 048
     Dates: start: 20140505, end: 20140505
  5. AVODART [Suspect]
     Indication: SUICIDE ATTEMPT
     Route: 048
     Dates: start: 20140505, end: 20140505
  6. AVODART [Suspect]
     Indication: BENIGN PROSTATIC HYPERPLASIA
     Route: 048
     Dates: start: 20140505, end: 20140505
  7. ZYPREXA [Suspect]
     Indication: SUICIDE ATTEMPT
     Route: 048
     Dates: start: 20140505, end: 20140505
  8. ZYPREXA [Suspect]
     Indication: ADJUSTMENT DISORDER WITH DEPRESSED MOOD
     Route: 048
     Dates: start: 20140505, end: 20140505
  9. RIVOTRIL [Suspect]
     Indication: SUICIDE ATTEMPT
     Dosage: AS PER NEED
     Route: 048
     Dates: start: 20140505, end: 20140505
  10. RIVOTRIL [Suspect]
     Indication: ADJUSTMENT DISORDER WITH DEPRESSED MOOD
     Dosage: AS PER NEED
     Route: 048
     Dates: start: 20140505, end: 20140505

REACTIONS (6)
  - Toxicity to various agents [Recovered/Resolved]
  - Drug abuse [Recovered/Resolved]
  - Suicide attempt [Unknown]
  - Anxiety [Recovered/Resolved]
  - Depressed mood [Recovered/Resolved]
  - Intentional overdose [Unknown]
